FAERS Safety Report 4514739-0 (Version None)
Quarter: 2004Q4

REPORT INFORMATION
  Report Type: 
  Country: None (occurrence: None)
  Receive Date: 20041201
  Receipt Date: 20041119
  Transmission Date: 20050328
  Serious: Yes (Hospitalization)
  Sender: FDA-Public Use
  Company Number: US-JNJFOC-20041105183

PATIENT
  Sex: Female
  Weight: 144.7 kg

DRUGS (14)
  1. INFLIXIMAB [Suspect]
     Indication: RHEUMATOID ARTHRITIS
     Route: 042
  2. ACCUPRIL [Concomitant]
  3. ATENOLOL [Concomitant]
  4. DOCUSATE [Concomitant]
  5. ASPIRIN [Concomitant]
  6. FOLIC ACID [Concomitant]
  7. HYDROCHLOROTHIAZIDE [Concomitant]
  8. IRON [Concomitant]
  9. NAPROXEN [Concomitant]
  10. AVANDIA [Concomitant]
  11. ULTRACET [Concomitant]
  12. LIPITOR [Concomitant]
  13. GLUCOVANCE [Concomitant]
  14. GLUCOVANCE [Concomitant]

REACTIONS (2)
  - CHEST PAIN [None]
  - CORONARY ARTERY DISEASE [None]
